FAERS Safety Report 9789464 (Version 5)
Quarter: 2014Q2

REPORT INFORMATION
  Report Type: Report from Study
  Country: AU (occurrence: AU)
  Receive Date: 20131231
  Receipt Date: 20140527
  Transmission Date: 20141212
  Serious: Yes (Disabling)
  Sender: FDA-Public Use
  Company Number: AU-ROCHE-1327804

PATIENT
  Age: 78 Year
  Sex: Female

DRUGS (3)
  1. ACTEMRA [Suspect]
     Indication: RHEUMATOID ARTHRITIS
     Route: 042
     Dates: start: 20131104
  2. NEXIUM [Concomitant]
     Indication: DUODENAL ULCER
     Dosage: WHEN REQUIRED;STARTED 15 YEARS AGO
     Route: 048
  3. EVISTA [Concomitant]
     Indication: OSTEOPOROSIS
     Dosage: STARTED 10 YEARS AGO
     Route: 048

REACTIONS (11)
  - Back pain [Recovered/Resolved]
  - Pain in extremity [Recovered/Resolved]
  - Joint swelling [Unknown]
  - Musculoskeletal pain [Recovered/Resolved]
  - Arthralgia [Unknown]
  - Pain in extremity [Recovered/Resolved]
  - Pain in extremity [Recovered/Resolved]
  - Arthralgia [Recovered/Resolved]
  - Peripheral swelling [Recovered/Resolved]
  - Drug ineffective [Unknown]
  - Rheumatoid arthritis [Recovered/Resolved]
